FAERS Safety Report 25351463 (Version 1)
Quarter: 2025Q2

REPORT INFORMATION
  Report Type: Report from Study
  Country: US (occurrence: US)
  Receive Date: 20250523
  Receipt Date: 20250523
  Transmission Date: 20250717
  Serious: No
  Sender: DR REDDYS
  Company Number: US-DRL-USA-USA/2025/05/006944

PATIENT
  Sex: Male
  Weight: 23.49 kg

DRUGS (2)
  1. JAVYGTOR [Suspect]
     Active Substance: SAPROPTERIN DIHYDROCHLORIDE
     Indication: Hyperphenylalaninaemia
     Dosage: DISSOLVE ONE 500 MG POWDER PACKET IN 60 ML OF WATER AND ADMINISTER 48 ML DAILY FOR A TOTAL DAILY DOS
     Route: 048
  2. RISPERDAL [Suspect]
     Active Substance: RISPERIDONE
     Indication: Product used for unknown indication
     Route: 065

REACTIONS (4)
  - Weight increased [Unknown]
  - Prescription drug used without a prescription [Unknown]
  - Overdose [Unknown]
  - Product prescribing error [Unknown]
